FAERS Safety Report 21010670 (Version 1)
Quarter: 2022Q2

REPORT INFORMATION
  Report Type: Spontaneous
  Country: US (occurrence: None)
  Receive Date: 20220624
  Receipt Date: 20220624
  Transmission Date: 20220720
  Serious: Yes (Hospitalization)
  Sender: FDA-Public Use
  Company Number: None

PATIENT
  Age: 54 Year
  Sex: Female

DRUGS (1)
  1. INLYTA [Suspect]
     Active Substance: AXITINIB
     Indication: Renal cancer
     Dosage: 5MG TWICE DAILY BY MOUTH?
     Route: 048
     Dates: start: 20220429

REACTIONS (2)
  - Urinary tract infection [None]
  - Diabetes mellitus [None]

NARRATIVE: CASE EVENT DATE: 20220615
